FAERS Safety Report 4371443-X (Version None)
Quarter: 2004Q2

REPORT INFORMATION
  Report Type: 
  Country: None (occurrence: None)
  Receive Date: 20040607
  Receipt Date: 20030625
  Transmission Date: 20050107
  Serious: Yes (Hospitalization, Other)
  Sender: FDA-Public Use
  Company Number: FR-BRISTOL-MYERS SQUIBB COMPANY-12310850

PATIENT
  Age: 30 Year
  Sex: Female
  Weight: 63 kg

DRUGS (8)
  1. ZERIT [Suspect]
     Indication: HIV INFECTION
     Dosage: DISCONTINUED, RESTARTED 01-JUN-1999
     Route: 048
     Dates: start: 19980101, end: 20030318
  2. VIDEX [Suspect]
     Indication: HIV INFECTION
     Dosage: 1996 TO 1997 DISCONTINUED, RESTARTED 01-JUN-1999
     Route: 048
     Dates: start: 19960101, end: 20030318
  3. VIRAMUNE [Suspect]
     Indication: HIV INFECTION
     Route: 048
     Dates: start: 19990601, end: 20030318
  4. IMOVANE [Concomitant]
     Dates: start: 20010101
  5. BACTRIM [Concomitant]
     Dates: start: 20020101
  6. MEGAMAG [Concomitant]
     Dates: end: 20030601
  7. LEVOCARNIL [Concomitant]
     Dates: end: 20030601
  8. LEXOMIL [Concomitant]

REACTIONS (6)
  - BLOOD CREATINE PHOSPHOKINASE INCREASED [None]
  - HYPERCHOLESTEROLAEMIA [None]
  - HYPERTRIGLYCERIDAEMIA [None]
  - LIPODYSTROPHY ACQUIRED [None]
  - MITOCHONDRIAL CYTOPATHY [None]
  - MYALGIA [None]
